FAERS Safety Report 4411506-3 (Version None)
Quarter: 2004Q2

REPORT INFORMATION
  Report Type: 
  Country: None (occurrence: None)
  Receive Date: 20040630
  Receipt Date: 20040402
  Transmission Date: 20050107
  Serious: No
  Sender: FDA-Public Use
  Company Number: 04P-163-0256186-00

PATIENT
  Age: 73 Year
  Sex: Female

DRUGS (1)
  1. HUMIRA [Suspect]
     Dosage: 40 MG, SUBCUTANEOUS
     Route: 058

REACTIONS (5)
  - BLOOD GLUCOSE FLUCTUATION [None]
  - DIZZINESS [None]
  - FATIGUE [None]
  - HEADACHE [None]
  - LOSS OF CONSCIOUSNESS [None]
